FAERS Safety Report 25095561 (Version 1)
Quarter: 2025Q1

REPORT INFORMATION
  Report Type: Spontaneous
  Country: ZA (occurrence: ZA)
  Receive Date: 20250319
  Receipt Date: 20250319
  Transmission Date: 20250409
  Serious: Yes (Other)
  Sender: FRESENIUS KABI
  Company Number: ZA-FreseniusKabi-FK202503972

PATIENT
  Sex: Male
  Weight: 110 kg

DRUGS (1)
  1. PROPOVEN [Suspect]
     Active Substance: PROPOFOL
     Indication: General anaesthesia
     Route: 042

REACTIONS (2)
  - Accident at work [Unknown]
  - Skin laceration [Unknown]

NARRATIVE: CASE EVENT DATE: 20250307
